FAERS Safety Report 9147015 (Version 1)
Quarter: 2013Q1

REPORT INFORMATION
  Report Type: Spontaneous
  Country: GB (occurrence: None)
  Receive Date: 20130215
  Receipt Date: 20130215
  Transmission Date: 20140127
  Serious: Yes (Death)
  Sender: FDA-Public Use
  Company Number: GER/UKI/13/0027962

PATIENT
  Age: 60 Year
  Sex: Male
  Weight: 77 kg

DRUGS (30)
  1. GEMCITABINE (GEMCITABINE) [Suspect]
     Indication: NON-SMALL CELL LUNG CANCER STAGE IIIA
     Dosage: 2500  MG,  INTRAVENOUS  (NOT OTHERWISE SPECIFIED)?08/06/2012  -  10/15/2012
     Route: 042
     Dates: start: 20120806, end: 20121015
  2. ACYCLOVIR (ACICLOVIR) (ACICLOVIR) [Concomitant]
  3. AMIODARONE (AMIODARONE) [Concomitant]
  4. CARBOCISTEINE (CARBOCISTEINE) [Concomitant]
  5. CARBOPLATIN (CARBOPLATIN) [Concomitant]
  6. CASPOFUNGIN (CASPOFUNGIN) [Concomitant]
  7. CLARITHROMYCIN (CLARITHROMYCIN) [Concomitant]
  8. AMOXICILLIN\CLAVULANATE POTASSIUM [Concomitant]
  9. CO-CODAMOL (PANADEINE CO) [Concomitant]
  10. CO-TRIMOXAZOLE (CO-TRIMOXAZOLE) [Concomitant]
  11. DALTEPARIN (DALTEPARIN) [Concomitant]
  12. DIAMORPHINE (DIAMORPHINE) [Concomitant]
  13. EPOPROSTENOL (EPOPROSTENOL) [Concomitant]
  14. ESOMEPRAZOLE (ESOMEPRAZOLE) [Concomitant]
  15. FENTANYL (FENTANYL) [Concomitant]
  16. FUROSEMIDE (FUROSEMIDE) [Concomitant]
  17. GAVISCON (GAVISCON /00237601/ ) [Concomitant]
  18. HYDROCORTISONE (HYDROCORTISONE) [Concomitant]
  19. LANSOPRAZOLE (LANSOPRAZOLE) [Concomitant]
  20. MEROPENEM (MEROPENEM) [Concomitant]
  21. MIDAZOLAM (MIDAZOLAM) [Concomitant]
  22. MORPHINE (MORPHINE SULFATE) [Concomitant]
  23. NAPROXEN (NAPROXEN) [Concomitant]
  24. NORADRENALINE (NOREPINEPHRINE) [Concomitant]
  25. NORMAL SALINE (SODIUM CHLORIDE) [Concomitant]
  26. NYSTATIN (NYSTATIN) [Concomitant]
  27. PROPOFOL (PROPOFOL) [Concomitant]
  28. SULBUTAMOL (SALBUTAMOL) [Concomitant]
  29. TAZOCIN (PIP/TAZO) [Concomitant]
  30. TIOTROPIUM (TIOTROPIUM) [Concomitant]

REACTIONS (8)
  - Pulmonary fibrosis [None]
  - Thrombocytopenia [None]
  - Pneumonia [None]
  - Haemoptysis [None]
  - Lower respiratory tract infection [None]
  - Renal failure acute [None]
  - Acute respiratory distress syndrome [None]
  - Continuous haemodiafiltration [None]
